FAERS Safety Report 7030278 (Version 3)
Quarter: 2013Q1

REPORT INFORMATION
  Report Type: Report from Study
  Country: KR (occurrence: KR)
  Receive Date: 20090623
  Receipt Date: 20130219
  Transmission Date: 20140127
  Serious: Yes (Hospitalization)
  Sender: FDA-Public Use
  Company Number: KR-ROCHE-635012

PATIENT
  Age: 79 Year
  Sex: Male
  Weight: 62 kg

DRUGS (4)
  1. BEVACIZUMAB [Suspect]
     Indication: COLORECTAL CANCER METASTATIC
     Route: 042
  2. BEVACIZUMAB [Suspect]
     Dosage: 4TH CYCLE; REPORTED FORM: VIAL.
     Route: 042
  3. CAPECITABINE [Suspect]
     Indication: COLORECTAL CANCER METASTATIC
     Route: 048
  4. CAPECITABINE [Suspect]
     Dosage: 4TH CYCLE; REPORTED FORM: FILM COATED TABLET.LAST DOSE PRIOR TO SAE: 24 MAY 2009
     Route: 048
     Dates: start: 20090520, end: 20090525

REACTIONS (1)
  - Vomiting [Not Recovered/Not Resolved]
